FAERS Safety Report 8162670 (Version 10)
Quarter: 2015Q3

REPORT INFORMATION
  Report Type: Spontaneous
  Country: US (occurrence: US)
  Receive Date: 20110929
  Receipt Date: 20150709
  Transmission Date: 20151125
  Serious: Yes (Hospitalization, Disabling, Other)
  Sender: FDA-Public Use
  Company Number: US-009507513-1109USA03018

PATIENT
  Sex: Female
  Weight: 65.59 kg

DRUGS (5)
  1. FOSAMAX [Suspect]
     Active Substance: ALENDRONATE SODIUM
     Dosage: 10 MG, UNK
     Route: 048
     Dates: start: 19980123, end: 2009
  2. FOSAMAX [Suspect]
     Active Substance: ALENDRONATE SODIUM
     Indication: OSTEOPOROSIS
     Dosage: 70  MG, UNK
     Route: 048
     Dates: start: 200912, end: 201002
  3. ALENDRONATE SODIUM. [Suspect]
     Active Substance: ALENDRONATE SODIUM
     Indication: OSTEOPOROSIS
     Route: 048
  4. FOSAMAX [Suspect]
     Active Substance: ALENDRONATE SODIUM
     Dosage: 70 MG, QW
     Route: 048
     Dates: start: 200206
  5. FOSAMAX [Suspect]
     Active Substance: ALENDRONATE SODIUM
     Indication: OSTEOPOROSIS
     Dosage: UNK
     Route: 048
     Dates: start: 1995, end: 2011

REACTIONS (64)
  - Low turnover osteopathy [Not Recovered/Not Resolved]
  - Femur fracture [Recovered/Resolved]
  - Groin pain [Unknown]
  - Hypothyroidism [Unknown]
  - Spinal column stenosis [Unknown]
  - Chondrocalcinosis pyrophosphate [Unknown]
  - Road traffic accident [Unknown]
  - Anxiety [Unknown]
  - Dilatation atrial [Unknown]
  - Lung disorder [Unknown]
  - Vertigo [Unknown]
  - Osteoarthritis [Unknown]
  - Ovarian mass [Unknown]
  - Paraesthesia [Unknown]
  - Urinary tract infection [Unknown]
  - Haematoma [Unknown]
  - Fall [Unknown]
  - Contusion [Unknown]
  - Diastolic dysfunction [Unknown]
  - Emphysema [Unknown]
  - Pulmonary fibrosis [Unknown]
  - Pleural fibrosis [Unknown]
  - Tremor [Unknown]
  - Contusion [Unknown]
  - Rhinorrhoea [Unknown]
  - Blood pressure increased [Unknown]
  - Inner ear disorder [Unknown]
  - Adverse drug reaction [Unknown]
  - Bronchiectasis [Unknown]
  - Fall [Unknown]
  - Arthralgia [Not Recovered/Not Resolved]
  - Femur fracture [Not Recovered/Not Resolved]
  - Atelectasis [Unknown]
  - Lung infiltration [Unknown]
  - Femur fracture [Recovered/Resolved]
  - Syncope [Unknown]
  - Pulmonary mass [Not Recovered/Not Resolved]
  - Hypertension [Unknown]
  - Tricuspid valve incompetence [Unknown]
  - Pulmonary mass [Unknown]
  - Nodule [Unknown]
  - Gastritis [Unknown]
  - Dizziness [Unknown]
  - Intervertebral disc degeneration [Unknown]
  - Toxicity to various agents [Unknown]
  - Nocturia [Unknown]
  - Chronic obstructive pulmonary disease [Not Recovered/Not Resolved]
  - Skin lesion [Unknown]
  - Osteopenia [Unknown]
  - Device failure [Unknown]
  - Adverse event [Unknown]
  - Cough [Unknown]
  - Bronchitis [Unknown]
  - Pulmonary arterial pressure increased [Unknown]
  - Hyperlipidaemia [Unknown]
  - Gastroenteritis viral [Unknown]
  - Spinal osteoarthritis [Not Recovered/Not Resolved]
  - Viral labyrinthitis [Unknown]
  - Road traffic accident [Unknown]
  - Rib fracture [Unknown]
  - Swelling [Unknown]
  - Fracture [Unknown]
  - Lung disorder [Unknown]
  - Oedema peripheral [Unknown]

NARRATIVE: CASE EVENT DATE: 2001
